FAERS Safety Report 5859157-8 (Version None)
Quarter: 2008Q3

REPORT INFORMATION
  Report Type: 
  Country: None (occurrence: None)
  Receive Date: 20080825
  Receipt Date: 20080811
  Transmission Date: 20090109
  Serious: Yes (Hospitalization)
  Sender: FDA-Public Use
  Company Number: S08-GER-02071-01

PATIENT
  Age: 32 Year
  Sex: Male
  Weight: 70 kg

DRUGS (3)
  1. ESCITALOPRAM [Suspect]
     Indication: DEPRESSION
     Dosage: 10 MG (10 MG, 1 IN 1 D)
     Dates: start: 20080509
  2. SUBOXONE (10 MILLIGRAM, UNKNOWN) [Suspect]
     Indication: DRUG DEPENDENCE
     Dosage: 10 MG (10 MG, 1 IN 1 D)
     Dates: start: 20080518
  3. OMEPRAZOL (20 MILLIGRAM) [Concomitant]

REACTIONS (3)
  - AFFECTIVE DISORDER [None]
  - AGITATION [None]
  - DRUG INTERACTION [None]
